FAERS Safety Report 7842730-5 (Version None)
Quarter: 2011Q4

REPORT INFORMATION
  Report Type: 
  Country: None (occurrence: None)
  Receive Date: 20111025
  Receipt Date: 20111014
  Transmission Date: 20120403
  Serious: Yes (Other)
  Sender: FDA-Public Use
  Company Number: JP-PFIZER INC-2011245210

PATIENT
  Age: 91 Year
  Sex: Male

DRUGS (8)
  1. LANSOPRAZOLE [Concomitant]
     Dosage: UNK
  2. CARBOCISTEINE [Concomitant]
     Dosage: UNK
  3. CEFAZOLIN SODIUM [Concomitant]
     Dosage: UNK
  4. MAGNESIUM OXIDE [Concomitant]
     Dosage: UNK
  5. VERAPAMIL HYDROCHLORIDE [Concomitant]
     Dosage: UNK
  6. LENIMEC [Suspect]
     Dosage: UNK
     Route: 050
  7. LIPITOR [Suspect]
     Dosage: 5 MG DAILY
     Route: 050
  8. WARFARIN [Concomitant]
     Dosage: UNK

REACTIONS (1)
  - INAPPROPRIATE ANTIDIURETIC HORMONE SECRETION [None]
